FAERS Safety Report 9550938 (Version 1)
Quarter: 2013Q3

REPORT INFORMATION
  Report Type: Spontaneous
  Country: US (occurrence: US)
  Receive Date: 20130924
  Receipt Date: 20130924
  Transmission Date: 20140515
  Serious: No
  Sender: FDA-Public Use
  Company Number: US-SANOFI-AVENTIS-2013SA041742

PATIENT
  Age: 51 Year
  Sex: Female

DRUGS (1)
  1. AUBAGIO [Suspect]
     Indication: MULTIPLE SCLEROSIS
     Route: 048
     Dates: start: 20130326

REACTIONS (4)
  - Abdominal discomfort [Recovered/Resolved]
  - Nodule [Not Recovered/Not Resolved]
  - Arthropod bite [Unknown]
  - Abdominal pain upper [Recovered/Resolved]
